FAERS Safety Report 5839943-0 (Version None)
Quarter: 2008Q3

REPORT INFORMATION
  Report Type: 
  Country: None (occurrence: None)
  Receive Date: 20080808
  Receipt Date: 20080808
  Transmission Date: 20090109
  Serious: Yes (Hospitalization)
  Sender: FDA-Public Use
  Company Number: None

PATIENT
  Sex: Male
  Weight: 65.7716 kg

DRUGS (1)
  1. TALECRIS IMMUNE GLOBULIN GAMASTAN SID [Suspect]
     Indication: PROPHYLAXIS
     Dosage: 1.3CC 1X IM
     Route: 030
     Dates: start: 20080709

REACTIONS (1)
  - RESPIRATORY DISORDER [None]
